FAERS Safety Report 11658898 (Version 4)
Quarter: 2015Q4

REPORT INFORMATION
  Report Type: Report from Study
  Country: US (occurrence: US)
  Receive Date: 20151026
  Receipt Date: 20151112
  Transmission Date: 20160304
  Serious: No
  Sender: FDA-Public Use
  Company Number: PHEH2015US020896

PATIENT
  Age: 56 Year
  Sex: Female

DRUGS (2)
  1. FEMARA [Suspect]
     Active Substance: LETROZOLE
     Indication: BREAST CANCER
     Dosage: UNK
     Route: 065
  2. FASLODEX [Concomitant]
     Active Substance: FULVESTRANT
     Indication: BREAST CANCER
     Route: 065

REACTIONS (3)
  - Insomnia [Recovering/Resolving]
  - Hot flush [Recovered/Resolved]
  - Vaginal disorder [Recovering/Resolving]

NARRATIVE: CASE EVENT DATE: 2014
